FAERS Safety Report 4772464-5 (Version None)
Quarter: 2005Q3

REPORT INFORMATION
  Report Type: 
  Country: None (occurrence: None)
  Receive Date: 20050914
  Receipt Date: 20041118
  Transmission Date: 20060218
  Serious: Yes (Death)
  Sender: FDA-Public Use
  Company Number: 163-20785-04110467

PATIENT
  Age: 43 Year
  Sex: Male

DRUGS (1)
  1. THALOMID [Suspect]
     Indication: ASTROCYTOMA
     Dosage: 200 MG, DAILY, ORAL
     Route: 048
     Dates: start: 20031015, end: 20040901

REACTIONS (7)
  - BURNING SENSATION [None]
  - DEATH [None]
  - DISEASE PROGRESSION [None]
  - DYSAESTHESIA [None]
  - HYPOAESTHESIA [None]
  - NEUROPATHY [None]
  - OEDEMA PERIPHERAL [None]
